FAERS Safety Report 7131430-5 (Version None)
Quarter: 2010Q4

REPORT INFORMATION
  Report Type: 
  Country: None (occurrence: None)
  Receive Date: 20101201
  Receipt Date: 20101019
  Transmission Date: 20110411
  Serious: Yes (Death, Life-Threatening, Hospitalization, Other)
  Sender: FDA-Public Use
  Company Number: US-BAXTER-2010BH006505

PATIENT
  Age: 77 Year
  Sex: Female
  Weight: 74 kg

DRUGS (19)
  1. HEPARIN SODIUM INJECTION [Suspect]
     Indication: HAEMODIALYSIS
     Route: 042
     Dates: start: 20080121, end: 20080128
  2. HEPARIN SODIUM INJECTION [Suspect]
     Route: 042
     Dates: start: 20051114
  3. HEPARIN SODIUM INJECTION [Suspect]
     Route: 040
     Dates: start: 20070924, end: 20070924
  4. HEPARIN SODIUM INJECTION [Suspect]
     Route: 042
     Dates: start: 20080121, end: 20080127
  5. HEPARIN SODIUM INJECTION [Suspect]
     Route: 042
     Dates: start: 20070924, end: 20070924
  6. ZEMPLAR [Concomitant]
     Indication: PRODUCT USED FOR UNKNOWN INDICATION
     Route: 065
  7. EPOGEN [Concomitant]
     Indication: PRODUCT USED FOR UNKNOWN INDICATION
     Route: 065
  8. HYDRALAZINE HCL 25MG TAB [Concomitant]
     Indication: PRODUCT USED FOR UNKNOWN INDICATION
     Route: 065
  9. DULCOLAX [Concomitant]
     Indication: PRODUCT USED FOR UNKNOWN INDICATION
     Route: 065
  10. PREVACID [Concomitant]
     Indication: PRODUCT USED FOR UNKNOWN INDICATION
     Route: 065
  11. NEPHRO-VITE RX [Concomitant]
     Indication: PRODUCT USED FOR UNKNOWN INDICATION
     Route: 065
  12. RENAGEL [Concomitant]
     Indication: PRODUCT USED FOR UNKNOWN INDICATION
     Route: 065
  13. SENOKOT                                 /USA/ [Concomitant]
     Indication: PRODUCT USED FOR UNKNOWN INDICATION
     Route: 065
  14. INSULIN [Concomitant]
     Indication: PRODUCT USED FOR UNKNOWN INDICATION
     Route: 065
  15. ZOSYN [Concomitant]
     Indication: PRODUCT USED FOR UNKNOWN INDICATION
     Route: 065
  16. TOPROL-XL [Concomitant]
     Indication: PRODUCT USED FOR UNKNOWN INDICATION
     Route: 065
  17. METOPROLOL SUCCINATE [Concomitant]
     Indication: PRODUCT USED FOR UNKNOWN INDICATION
     Route: 065
  18. PANTOPRAZOLE SODIUM [Concomitant]
     Indication: PRODUCT USED FOR UNKNOWN INDICATION
     Route: 065
  19. CALCIUM WITH VITAMIN D [Concomitant]
     Indication: PRODUCT USED FOR UNKNOWN INDICATION
     Route: 065

REACTIONS (33)
  - ABDOMINAL PAIN [None]
  - ACIDOSIS [None]
  - ACUTE RESPIRATORY FAILURE [None]
  - ANAEMIA [None]
  - ANAL HAEMORRHAGE [None]
  - ATRIAL FIBRILLATION [None]
  - CLOSTRIDIAL INFECTION [None]
  - COLLAPSE OF LUNG [None]
  - DEEP VEIN THROMBOSIS [None]
  - DIZZINESS [None]
  - DUODENAL ULCER [None]
  - DYSPHAGIA [None]
  - HEPARIN-INDUCED THROMBOCYTOPENIA [None]
  - HYPEROSMOLAR STATE [None]
  - HYPERSENSITIVITY [None]
  - HYPERVOLAEMIA [None]
  - LETHARGY [None]
  - LOWER GASTROINTESTINAL HAEMORRHAGE [None]
  - MALNUTRITION [None]
  - MECHANICAL VENTILATION [None]
  - MENTAL STATUS CHANGES [None]
  - OSTEOMYELITIS [None]
  - PANCYTOPENIA [None]
  - PERICARDIAL EFFUSION [None]
  - PLEURAL EFFUSION [None]
  - PSYCHOMOTOR SKILLS IMPAIRED [None]
  - RENAL FAILURE CHRONIC [None]
  - RESPIRATORY DISTRESS [None]
  - SEPSIS [None]
  - THROMBOCYTOPENIA [None]
  - THROMBOSIS IN DEVICE [None]
  - URINARY TRACT INFECTION [None]
  - VOMITING [None]
